FAERS Safety Report 4778600-9 (Version None)
Quarter: 2005Q3

REPORT INFORMATION
  Report Type: 
  Country: None (occurrence: None)
  Receive Date: 20050923
  Receipt Date: 20050908
  Transmission Date: 20060218
  Serious: Yes (Other)
  Sender: FDA-Public Use
  Company Number: CIP05002074

PATIENT
  Age: 57 Year
  Sex: Male

DRUGS (8)
  1. RISEDRONATE SODIUM [Suspect]
     Indication: OSTEOPOROSIS
     Dosage: 2.5 MG DAILY, ORAL
     Route: 048
     Dates: start: 20050524, end: 20050725
  2. RABEPRAZOLE SODIUM [Concomitant]
  3. CLARITH (CLARITHROMYCIN) [Concomitant]
  4. VOLTAREN [Concomitant]
  5. ESANBUTOL (ETHAMBUTOL) [Concomitant]
  6. PREDNISOLONE [Concomitant]
  7. RIMACTANE [Concomitant]
  8. ZOLPIDEM TARTRATE [Concomitant]

REACTIONS (9)
  - ACTIVITIES OF DAILY LIVING IMPAIRED [None]
  - ARTHRALGIA [None]
  - C-REACTIVE PROTEIN INCREASED [None]
  - DRUG INEFFECTIVE [None]
  - EOSINOPHIL COUNT DECREASED [None]
  - MYALGIA [None]
  - PAIN [None]
  - PARAESTHESIA [None]
  - PLATELET COUNT INCREASED [None]
